FAERS Safety Report 24641211 (Version 1)
Quarter: 2024Q4

REPORT INFORMATION
  Report Type: Spontaneous
  Country: JP (occurrence: JP)
  Receive Date: 20241120
  Receipt Date: 20241120
  Transmission Date: 20250115
  Serious: Yes (Other)
  Sender: CHEPLAPHARM
  Company Number: JP-CP_KK-2024JP002029

PATIENT
  Age: 7 Decade
  Sex: Female

DRUGS (6)
  1. CAPECITABINE [Interacting]
     Active Substance: CAPECITABINE
     Indication: Rectal cancer
     Dosage: 2,400 MG/DAY (2 WEEKS ON, 1 WEEK OFF )?DAILY DOSE: 2400 MILLIGRAM
  2. WARFARIN [Interacting]
     Active Substance: WARFARIN
     Indication: Thrombosis prophylaxis
     Dosage: 1.5MG/DAY?DAILY DOSE: 1.5 MILLIGRAM
  3. WARFARIN [Interacting]
     Active Substance: WARFARIN
     Indication: Thrombosis prophylaxis
     Dosage: 1.25MG/DAY?DAILY DOSE: 1.25 MILLIGRAM
  4. WARFARIN [Interacting]
     Active Substance: WARFARIN
     Indication: Thrombosis prophylaxis
     Dosage: 1.25MG-0.75MG/DAY
  5. WARFARIN [Interacting]
     Active Substance: WARFARIN
     Indication: Thrombosis prophylaxis
     Dosage: 1.0MG/DAY?DAILY DOSE: 1 MILLIGRAM
  6. WARFARIN [Interacting]
     Active Substance: WARFARIN
     Indication: Thrombosis prophylaxis
     Dosage: 1.25MG/DAY?DAILY DOSE: 1.25 MILLIGRAM

REACTIONS (3)
  - International normalised ratio increased [Recovering/Resolving]
  - Haemorrhage subcutaneous [Recovering/Resolving]
  - Labelled drug-drug interaction issue [Unknown]
